FAERS Safety Report 6181012-7 (Version None)
Quarter: 2009Q2

REPORT INFORMATION
  Report Type: 
  Country: None (occurrence: None)
  Receive Date: 20090506
  Receipt Date: 20090427
  Transmission Date: 20091009
  Serious: Yes (Other)
  Sender: FDA-Public Use
  Company Number: ES-PFIZER INC-2009205304

PATIENT

DRUGS (3)
  1. IRINOTECAN HCL [Suspect]
     Indication: RECTAL CANCER METASTATIC
  2. OXALIPLATIN [Suspect]
     Indication: RECTAL CANCER METASTATIC
  3. FLUOROURACIL [Suspect]
     Indication: RECTAL CANCER METASTATIC

REACTIONS (2)
  - DISEASE RECURRENCE [None]
  - MALIGNANT MELANOMA [None]
